FAERS Safety Report 7631672-6 (Version None)
Quarter: 2011Q3

REPORT INFORMATION
  Report Type: 
  Country: None (occurrence: None)
  Receive Date: 20110725
  Receipt Date: 20110215
  Transmission Date: 20111222
  Serious: Yes (Other)
  Sender: FDA-Public Use
  Company Number: US-BRISTOL-MYERS SQUIBB COMPANY-15551229

PATIENT
  Age: 53 Year
  Sex: Female
  Weight: 56 kg

DRUGS (3)
  1. COUMADIN [Suspect]
  2. BLOOD PRESSURE MEDICATION [Concomitant]
  3. FERROUS SULFATE TAB [Concomitant]

REACTIONS (6)
  - HYPOAESTHESIA [None]
  - RECTAL HAEMORRHAGE [None]
  - ASTHENIA [None]
  - DIZZINESS [None]
  - FATIGUE [None]
  - PAIN [None]
